FAERS Safety Report 23729872 (Version 2)
Quarter: 2024Q3

REPORT INFORMATION
  Report Type: Spontaneous
  Country: FR (occurrence: FR)
  Receive Date: 20240411
  Receipt Date: 20240725
  Transmission Date: 20241016
  Serious: Yes (Other)
  Sender: NOVO NORDISK
  Company Number: FR-NOVOPROD-1198067

PATIENT
  Sex: Male
  Weight: 102 kg

DRUGS (8)
  1. OZEMPIC [Suspect]
     Active Substance: SEMAGLUTIDE
     Indication: Diabetes mellitus
     Dosage: 0.25 MG, QW
     Route: 058
     Dates: start: 202205
  2. OZEMPIC [Suspect]
     Active Substance: SEMAGLUTIDE
     Dosage: 0.5 MG, QW
     Route: 058
  3. OZEMPIC [Suspect]
     Active Substance: SEMAGLUTIDE
     Dosage: 1 MG, QW
     Route: 058
     Dates: end: 202401
  4. METFORMIN HYDROCHLORIDE [Concomitant]
     Active Substance: METFORMIN HYDROCHLORIDE
     Indication: Diabetes mellitus
     Dosage: 1000 MG, BID (TREATMENT TAKEN SINCE MORE THAN 10 YEARS)
     Route: 048
     Dates: end: 202401
  5. GLICLAZIDE [Concomitant]
     Active Substance: GLICLAZIDE
     Indication: Diabetes mellitus
     Dosage: 30 ARBITRARY UNITS, QD (TREATMENT TAKEN FOR MORE THAN 5 YEARS)
     Route: 048
     Dates: end: 202401
  6. RAMIPRIL [Concomitant]
     Active Substance: RAMIPRIL
     Indication: Hypertension
     Dosage: 5 ARBITRARY UNITS, QD (TREATMENT TAKEN FOR MORE THAN 5 YEARS)
     Route: 048
     Dates: end: 202401
  7. ROSUVASTATIN [Concomitant]
     Active Substance: ROSUVASTATIN
     Indication: Hypercholesterolaemia
     Dosage: 5 ARBITRARY UNITS, QD
     Route: 048
     Dates: start: 202205
  8. ALFUZOSIN HYDROCHLORIDE [Concomitant]
     Active Substance: ALFUZOSIN HYDROCHLORIDE
     Indication: Prostatic disorder
     Dosage: 10 ARBITRARY UNITS, QD
     Route: 048

REACTIONS (2)
  - Pancreatic carcinoma [Unknown]
  - Neuroendocrine carcinoma [Not Recovered/Not Resolved]

NARRATIVE: CASE EVENT DATE: 20220701
